FAERS Safety Report 5009203-9 (Version None)
Quarter: 2006Q2

REPORT INFORMATION
  Report Type: 
  Country: None (occurrence: None)
  Receive Date: 20060519
  Receipt Date: 20060505
  Transmission Date: 20061013
  Serious: Yes (Life-Threatening, Hospitalization)
  Sender: FDA-Public Use
  Company Number: 2006RR-02203

PATIENT
  Age: 59 Year
  Sex: Female

DRUGS (3)
  1. DILTIAZEM [Suspect]
     Dosage: 24 X 240MG, ORAL
     Route: 048
  2. ZOLPIDEM TARTRATE [Suspect]
     Dosage: 12 X 10 MG, ORAL
     Route: 048
  3. LORAZEPAM [Suspect]
     Dosage: 4 X 1 MG,

REACTIONS (5)
  - HYPERGLYCAEMIA [None]
  - HYPOTENSION [None]
  - LACTIC ACIDOSIS [None]
  - MULTIPLE DRUG OVERDOSE INTENTIONAL [None]
  - SINUS BRADYCARDIA [None]
